FAERS Safety Report 5015307-7 (Version None)
Quarter: 2006Q2

REPORT INFORMATION
  Report Type: 
  Country: None (occurrence: None)
  Receive Date: 20060530
  Receipt Date: 20060530
  Transmission Date: 20061013
  Serious: No
  Sender: FDA-Public Use
  Company Number: None

PATIENT
  Age: 52 Year
  Sex: Female
  Weight: 63.5036 kg

DRUGS (2)
  1. RETEVASE [Suspect]
     Indication: THROMBOLYSIS
     Dosage: 0.5 UNITS/HR
  2. HEPARIN [Concomitant]

REACTIONS (9)
  - ARTERIAL THROMBOSIS [None]
  - BRAIN DEATH [None]
  - CEREBRAL HAEMORRHAGE [None]
  - HAEMATOCRIT DECREASED [None]
  - HEADACHE [None]
  - INFUSION RELATED REACTION [None]
  - INTERNATIONAL NORMALISED RATIO DECREASED [None]
  - MYDRIASIS [None]
  - PUPIL FIXED [None]
